FAERS Safety Report 4497990-8 (Version None)
Quarter: 2004Q4

REPORT INFORMATION
  Report Type: 
  Country: None (occurrence: None)
  Receive Date: 20041110
  Receipt Date: 20041028
  Transmission Date: 20050328
  Serious: Yes (Death, Other)
  Sender: FDA-Public Use
  Company Number: PHBS2004CA14500

PATIENT
  Age: 39 Year
  Sex: Male

DRUGS (3)
  1. TEGRETOL [Suspect]
     Indication: TRIGEMINAL NEURALGIA
     Dosage: 200 MG, BID
     Route: 048
     Dates: start: 20040623
  2. ALCOHOL [Suspect]
  3. CELEBREX [Concomitant]
     Dosage: 100 MG, BID

REACTIONS (5)
  - HEPATIC STEATOSIS [None]
  - HEPATITIS [None]
  - PULMONARY CONGESTION [None]
  - PULMONARY OEDEMA [None]
  - SUDDEN DEATH [None]
